FAERS Safety Report 9246699 (Version 3)
Quarter: 2013Q2

REPORT INFORMATION
  Report Type: Spontaneous
  Country: ES (occurrence: ES)
  Receive Date: 20130422
  Receipt Date: 20130521
  Transmission Date: 20140414
  Serious: Yes (Hospitalization)
  Sender: FDA-Public Use
  Company Number: ES-BRISTOL-MYERS SQUIBB COMPANY-18797704

PATIENT
  Age: 71 Year
  Sex: Male

DRUGS (8)
  1. KOMBOGLYZE [Suspect]
     Indication: TYPE 2 DIABETES MELLITUS
     Dosage: 1DF: 1000/2.5/12H UNITS NOS?14APR2013
     Route: 048
     Dates: start: 20130314, end: 20130416
  2. METFORMIN [Concomitant]
  3. ALLOPURINOL [Concomitant]
  4. RAMIPRIL [Concomitant]
     Indication: HYPERURICAEMIA
     Route: 048
     Dates: start: 200706
  5. CARVEDILOL [Concomitant]
     Route: 048
     Dates: start: 200706
  6. SINTROM [Concomitant]
  7. TIMOLOL [Concomitant]
     Indication: OCULAR HYPERTENSION
     Dosage: EYE DROPS
     Route: 047
     Dates: start: 200710
  8. ACENOCOUMAROL [Concomitant]
     Indication: ATRIAL FIBRILLATION
     Route: 048
     Dates: start: 200706

REACTIONS (1)
  - Pancreatitis [Recovered/Resolved]
